FAERS Safety Report 19309610 (Version 10)
Quarter: 2022Q2

REPORT INFORMATION
  Report Type: Report from Study
  Country: US (occurrence: US)
  Receive Date: 20210526
  Receipt Date: 20220506
  Transmission Date: 20220720
  Serious: Yes (Hospitalization, Other)
  Sender: FDA-Public Use
  Company Number: US-NOVARTISPH-NVSC2021US118559

PATIENT
  Sex: Female

DRUGS (4)
  1. ENTRESTO [Suspect]
     Active Substance: SACUBITRIL\VALSARTAN
     Indication: Cardiac failure
     Dosage: 50 MG, (24/26 MG), BID
     Route: 048
     Dates: start: 20210518
  2. ENTRESTO [Suspect]
     Active Substance: SACUBITRIL\VALSARTAN
     Dosage: 100 MG, (49/51 MG), BID
     Route: 048
  3. TOPROL XL [Concomitant]
     Active Substance: METOPROLOL SUCCINATE
     Indication: Product used for unknown indication
     Dosage: 50 MG
     Route: 065
  4. PROFENON [Concomitant]
     Indication: Product used for unknown indication
     Dosage: UNK
     Route: 005

REACTIONS (26)
  - Chest discomfort [Recovered/Resolved]
  - Asthenia [Recovered/Resolved]
  - Pain in extremity [Recovered/Resolved]
  - Blood glucose increased [Recovered/Resolved]
  - Hypertension [Recovered/Resolved]
  - Hypoaesthesia [Recovered/Resolved]
  - Atrial fibrillation [Not Recovered/Not Resolved]
  - Helminthic infection [Recovered/Resolved]
  - Diabetes mellitus [Recovered/Resolved]
  - Muscular weakness [Unknown]
  - Dyspnoea [Unknown]
  - Peripheral swelling [Unknown]
  - Claustrophobia [Unknown]
  - Tremor [Unknown]
  - Amnesia [Unknown]
  - Wheezing [Unknown]
  - Pollakiuria [Unknown]
  - Cystitis [Unknown]
  - Vomiting [Recovered/Resolved]
  - Dehydration [Unknown]
  - Weight decreased [Recovered/Resolved]
  - Abdominal discomfort [Recovered/Resolved]
  - Diarrhoea [Recovered/Resolved]
  - Cough [Unknown]
  - Blood pressure diastolic decreased [Recovered/Resolved]
  - Nausea [Recovering/Resolving]

NARRATIVE: CASE EVENT DATE: 20210101
